FAERS Safety Report 4765851-2 (Version None)
Quarter: 2005Q3

REPORT INFORMATION
  Report Type: 
  Country: None (occurrence: None)
  Receive Date: 20050906
  Receipt Date: 20050826
  Transmission Date: 20060218
  Serious: Yes (Disabling, Other)
  Sender: FDA-Public Use
  Company Number: 200510485BNE

PATIENT
  Age: 52 Year
  Sex: Female
  Weight: 63.5036 kg

DRUGS (1)
  1. CIPROFLOXACIN [Suspect]
     Indication: GASTROINTESTINAL INFECTION

REACTIONS (3)
  - ARTHRALGIA [None]
  - ARTHRITIS [None]
  - JOINT SWELLING [None]
